FAERS Safety Report 23187281 (Version 1)
Quarter: 2023Q4

REPORT INFORMATION
  Report Type: Spontaneous
  Country: HU (occurrence: HU)
  Receive Date: 20231115
  Receipt Date: 20231115
  Transmission Date: 20240110
  Serious: Yes (Life-Threatening, Other)
  Sender: FDA-Public Use
  Company Number: HU-002147023-NVSC2023HU242911

PATIENT
  Age: 43 Year
  Sex: Male

DRUGS (11)
  1. ELTROMBOPAG OLAMINE [Suspect]
     Active Substance: ELTROMBOPAG OLAMINE
     Indication: Immune thrombocytopenia
     Dosage: UNK
     Route: 065
     Dates: start: 202102
  2. CYCLOSPORINE [Suspect]
     Active Substance: CYCLOSPORINE
     Indication: Immune thrombocytopenia
     Dosage: UNK
     Route: 065
  3. IMMUNOGLOBULIN [Concomitant]
     Indication: Immune thrombocytopenia
     Dosage: (30-30 G/ DAY)
     Route: 042
     Dates: start: 202102
  4. IMMUNOGLOBULIN [Concomitant]
     Dosage: (30-40 G/ DAY)
     Route: 042
     Dates: start: 202102
  5. IMMUNOGLOBULIN [Concomitant]
     Dosage: (60-60-30 G/ DAY)
     Route: 042
     Dates: start: 202105
  6. ROMIPLOSTIM [Concomitant]
     Active Substance: ROMIPLOSTIM
     Indication: Immune thrombocytopenia
     Dosage: UNK
     Route: 065
     Dates: start: 2021
  7. RITUXIMAB [Concomitant]
     Active Substance: RITUXIMAB
     Indication: Immune thrombocytopenia
     Dosage: UNK
     Route: 065
     Dates: start: 202103
  8. VINCRISTINE [Concomitant]
     Active Substance: VINCRISTINE
     Indication: Product used for unknown indication
     Dosage: UNK
     Route: 065
     Dates: start: 202103
  9. MYCOPHENOLATE MOFETIL [Concomitant]
     Active Substance: MYCOPHENOLATE MOFETIL
     Indication: Product used for unknown indication
     Dosage: UNK
     Route: 065
     Dates: start: 202104
  10. NOVOSEVEN [Concomitant]
     Active Substance: COAGULATION FACTOR VIIA RECOMBINANT HUMAN
     Indication: Product used for unknown indication
     Dosage: UNK
     Route: 065
     Dates: start: 202103
  11. CYCLOPHOSPHAMIDE [Concomitant]
     Active Substance: CYCLOPHOSPHAMIDE
     Indication: Product used for unknown indication
     Dosage: UNK
     Route: 065
     Dates: start: 202104

REACTIONS (6)
  - Platelet count decreased [Recovered/Resolved]
  - Nephrolithiasis [Unknown]
  - Cytomegalovirus infection reactivation [Unknown]
  - Haematuria [Unknown]
  - Pyrexia [Unknown]
  - Product use in unapproved indication [Unknown]

NARRATIVE: CASE EVENT DATE: 20210101
